FAERS Safety Report 4544866-3 (Version None)
Quarter: 2005Q1

REPORT INFORMATION
  Report Type: 
  Country: None (occurrence: None)
  Receive Date: 20050104
  Receipt Date: 20041222
  Transmission Date: 20050727
  Serious: Yes (Other)
  Sender: FDA-Public Use
  Company Number: DE-2004-036608

PATIENT
  Age: 38 Year
  Sex: Female

DRUGS (2)
  1. MIRENA [Suspect]
     Indication: CONTRACEPTION
     Dosage: 20  UG/DAY, CONT, INTRA-UTERINE
     Route: 015
     Dates: start: 20040201
  2. NIZORAL [Concomitant]

REACTIONS (4)
  - FOCAL NODULAR HYPERPLASIA [None]
  - GAMMA-GLUTAMYLTRANSFERASE INCREASED [None]
  - GILBERT'S SYNDROME [None]
  - HEPATIC ENZYME INCREASED [None]
